FAERS Safety Report 5729856-7 (Version None)
Quarter: 2008Q2

REPORT INFORMATION
  Report Type: 
  Country: None (occurrence: None)
  Receive Date: 20080502
  Receipt Date: 20080424
  Transmission Date: 20081010
  Serious: Yes (Death, Hospitalization)
  Sender: FDA-Public Use
  Company Number: 2008US001209

PATIENT
  Age: 62 Year
  Sex: Female

DRUGS (7)
  1. PROGRAF [Suspect]
     Indication: INTESTINAL TRANSPLANT
     Dosage: 5 MG, BID, ORAL
     Dates: end: 20041201
  2. WARFARIN SODIUM [Suspect]
     Indication: DRUG USE FOR UNKNOWN INDICATION
  3. SIMULECT [Concomitant]
  4. MYCOPHENOLATE MOFETIL [Concomitant]
  5. CORTICOSTEROIDS [Concomitant]
  6. PREDNISONE TAB [Concomitant]
  7. VALGANCICLOVIR HCL [Concomitant]

REACTIONS (14)
  - ACINETOBACTER BACTERAEMIA [None]
  - BLOOD CULTURE POSITIVE [None]
  - BRONCHOPULMONARY ASPERGILLOSIS [None]
  - COAGULOPATHY [None]
  - CONSTIPATION [None]
  - DISSEMINATED CYTOMEGALOVIRAL INFECTION [None]
  - ENTEROCOCCAL INFECTION [None]
  - KLEBSIELLA INFECTION [None]
  - LUNG INFILTRATION [None]
  - MENINGITIS [None]
  - PERITONITIS BACTERIAL [None]
  - PSEUDOMONAL BACTERAEMIA [None]
  - STRONGYLOIDIASIS [None]
  - TRANSPLANT REJECTION [None]
